FAERS Safety Report 4499701-9 (Version None)
Quarter: 2004Q4

REPORT INFORMATION
  Report Type: 
  Country: None (occurrence: None)
  Receive Date: 20041112
  Receipt Date: 20041102
  Transmission Date: 20050328
  Serious: Yes (Hospitalization)
  Sender: FDA-Public Use
  Company Number: US-BRISTOL-MYERS SQUIBB COMPANY-12752820

PATIENT
  Age: 59 Year
  Sex: Female
  Weight: 68 kg

DRUGS (7)
  1. PRAVACHOL [Suspect]
     Dates: start: 20040629
  2. PLAVIX [Suspect]
     Dates: start: 20040629
  3. SYNTHROID [Concomitant]
  4. TOPROL-XL [Concomitant]
  5. DIOVAN [Concomitant]
  6. ASPIRIN [Concomitant]
     Dates: start: 20040629
  7. GLUCOPHAGE [Concomitant]
     Dates: end: 20040901

REACTIONS (14)
  - ASTHENIA [None]
  - DIARRHOEA [None]
  - DIFFICULTY IN WALKING [None]
  - DYSPHAGIA [None]
  - FATIGUE [None]
  - GASTROOESOPHAGEAL REFLUX DISEASE [None]
  - HIATUS HERNIA [None]
  - HYPOAESTHESIA [None]
  - MYALGIA [None]
  - NAUSEA [None]
  - OESOPHAGITIS [None]
  - PARAESTHESIA [None]
  - PHARYNGOLARYNGEAL PAIN [None]
  - VOCAL CORD INFLAMMATION [None]
